FAERS Safety Report 14125224 (Version 2)
Quarter: 2017Q4

REPORT INFORMATION
  Report Type: Spontaneous
  Country: US (occurrence: US)
  Receive Date: 20171025
  Receipt Date: 20171031
  Transmission Date: 20180321
  Serious: Yes (Other)
  Sender: FDA-Public Use
  Company Number: US-RECKITT BENCKISER HEALTHCARE INT LIMITED-RB-96750-2017

PATIENT
  Age: 83 Year
  Sex: Male

DRUGS (3)
  1. DELSYM [Suspect]
     Active Substance: DEXTROMETHORPHAN
     Indication: COUGH
     Dosage: 10 ML, BID (PATIENT TOOK 10ML OF THE PRODUCT AT APPROX. 3:30PM AND TOOK ANOTHER 10ML AT APPROX. 4:30
     Route: 048
     Dates: start: 20171018, end: 20171018
  2. FLUTICASONE. [Concomitant]
     Active Substance: FLUTICASONE
     Indication: PRODUCT USED FOR UNKNOWN INDICATION
     Dosage: UNK
     Route: 045
  3. ALCOHOL. [Suspect]
     Active Substance: ALCOHOL
     Indication: PRODUCT USED FOR UNKNOWN INDICATION
     Dosage: UNK, BID
     Route: 048
     Dates: start: 20171018

REACTIONS (5)
  - Dyskinesia [Recovered/Resolved]
  - Incorrect drug administration duration [Recovered/Resolved]
  - Feeling jittery [Recovered/Resolved]
  - Disorientation [Recovered/Resolved]
  - Drug ineffective [Not Recovered/Not Resolved]

NARRATIVE: CASE EVENT DATE: 20171018
